FAERS Safety Report 7197877-6 (Version None)
Quarter: 2010Q4

REPORT INFORMATION
  Report Type: 
  Country: None (occurrence: None)
  Receive Date: 20101209
  Receipt Date: 20101201
  Transmission Date: 20110411
  Serious: Yes (Hospitalization, Other)
  Sender: FDA-Public Use
  Company Number: 2010SP004556

PATIENT
  Age: 30 Year
  Sex: Female
  Weight: 77.1115 kg

DRUGS (1)
  1. NUVARING [Suspect]
     Indication: MENSTRUAL DISORDER
     Dates: start: 20060101, end: 20080101

REACTIONS (31)
  - AGORAPHOBIA [None]
  - ANEURYSM [None]
  - BACK PAIN [None]
  - BLOOD DISORDER [None]
  - BLOOD TRIGLYCERIDES INCREASED [None]
  - CEREBROVASCULAR ACCIDENT [None]
  - CEREBROVASCULAR DISORDER [None]
  - CHOLECYSTECTOMY [None]
  - COSTOCHONDRITIS [None]
  - DEEP VEIN THROMBOSIS [None]
  - DISEASE RECURRENCE [None]
  - FALL [None]
  - HYPOAESTHESIA [None]
  - INSOMNIA [None]
  - IRRITABILITY [None]
  - MAJOR DEPRESSION [None]
  - MEMORY IMPAIRMENT [None]
  - MENOMETRORRHAGIA [None]
  - MIGRAINE [None]
  - MUSCLE STRAIN [None]
  - NECK PAIN [None]
  - NO THERAPEUTIC RESPONSE [None]
  - OVARIAN CYST [None]
  - PALPITATIONS [None]
  - PANIC DISORDER [None]
  - PARAESTHESIA [None]
  - PHOTOPHOBIA [None]
  - PNEUMONIA [None]
  - SCOLIOSIS [None]
  - THYROID DISORDER [None]
  - VISUAL IMPAIRMENT [None]
